FAERS Safety Report 8613284-0 (Version None)
Quarter: 2012Q3

REPORT INFORMATION
  Report Type: 
  Country: None (occurrence: None)
  Receive Date: 20120822
  Receipt Date: 20120719
  Transmission Date: 20120928
  Serious: Yes (Other)
  Sender: FDA-Public Use
  Company Number: US-009507513-1207USA008040

PATIENT

DRUGS (10)
  1. SIMVASTATIN [Concomitant]
     Dosage: 1 DF, QD
  2. SINEMET [Suspect]
     Indication: PARKINSON'S DISEASE
     Dosage: 2 DF, BID
     Route: 048
     Dates: start: 20070101
  3. METFORMIN [Concomitant]
     Dosage: 850 MG, BID
  4. DIOVAN [Concomitant]
     Dosage: 1 DF, QD
  5. LIDODERM [Concomitant]
     Dosage: UNK, PRN
  6. PREVACID [Concomitant]
     Dosage: 2 DF, BID
  7. VICODIN [Concomitant]
     Dosage: 75/750 MG
  8. LEVOTHYROXINE SODIUM [Concomitant]
     Dosage: 50 MICROGRAM, QD
  9. COGENTIN [Concomitant]
     Dosage: 1 DF, QD
  10. MIRAPEX [Suspect]
     Dosage: 1 DF, QD

REACTIONS (1)
  - SOMNOLENCE [None]
